FAERS Safety Report 9121306 (Version 1)
Quarter: 2013Q1

REPORT INFORMATION
  Report Type: Spontaneous
  Country: GB (occurrence: GB)
  Receive Date: 20130225
  Receipt Date: 20130225
  Transmission Date: 20140127
  Serious: Yes (Other)
  Sender: FDA-Public Use
  Company Number: GB-009507513-1302GBR010285

PATIENT
  Sex: Female

DRUGS (10)
  1. JANUVIA [Suspect]
     Route: 048
  2. FRAGMIN [Concomitant]
  3. PIOGLITAZONE HYDROCHLORIDE [Concomitant]
  4. GLICLAZIDE [Concomitant]
  5. METFORMIN [Concomitant]
  6. RAMAPRIL COMP [Concomitant]
  7. SIMVASTATIN [Concomitant]
  8. KEPPRA [Concomitant]
  9. IMODIUM [Concomitant]
  10. JEVITY [Concomitant]

REACTIONS (4)
  - Cerebrovascular accident [Unknown]
  - Gastrointestinal tube insertion [Unknown]
  - Haemorrhage [Unknown]
  - Wrong technique in drug usage process [Unknown]
